FAERS Safety Report 23565974 (Version 1)
Quarter: 2024Q1

REPORT INFORMATION
  Report Type: Spontaneous
  Country: US (occurrence: None)
  Receive Date: 20240226
  Receipt Date: 20240226
  Transmission Date: 20240410
  Serious: Yes (Death)
  Sender: FDA-Public Use
  Company Number: None

PATIENT
  Age: 60 Year
  Sex: Male

DRUGS (3)
  1. GRANIX [Suspect]
     Active Substance: TBO-FILGRASTIM
     Indication: Stem cell transplant
     Dosage: 960MCG ONCE DAILY UNDER THE SKIN?
     Route: 058
     Dates: start: 202312
  2. GRANIX [Suspect]
     Active Substance: TBO-FILGRASTIM
     Indication: Stem cell transplant
     Dosage: 300MCG ONCE DAILY UNDER THE SKIN?
     Route: 058
     Dates: start: 202312
  3. ETOPOSIDE [Concomitant]
     Active Substance: ETOPOSIDE

REACTIONS (1)
  - Death [None]

NARRATIVE: CASE EVENT DATE: 20240207
